FAERS Safety Report 7187287-X (Version None)
Quarter: 2010Q4

REPORT INFORMATION
  Report Type: 
  Country: None (occurrence: None)
  Receive Date: 20101222
  Receipt Date: 20101217
  Transmission Date: 20110411
  Serious: Yes (Congenital Anomaly)
  Sender: FDA-Public Use
  Company Number: US-ABBOTT-09P-163-0595776-00

PATIENT
  Sex: Female
  Weight: 2.66 kg

DRUGS (11)
  1. RITONAVIR [Suspect]
     Indication: DRUG EXPOSURE DURING PREGNANCY
     Route: 064
     Dates: start: 20081117, end: 20090711
  2. RITONAVIR [Suspect]
     Route: 064
     Dates: end: 20081116
  3. SUSTIVA [Concomitant]
     Indication: DRUG EXPOSURE DURING PREGNANCY
     Route: 064
     Dates: start: 20060509, end: 20081116
  4. REYATAZ [Concomitant]
     Indication: DRUG EXPOSURE DURING PREGNANCY
     Route: 064
     Dates: start: 20081117, end: 20090711
  5. TRUVADA [Concomitant]
     Indication: DRUG EXPOSURE DURING PREGNANCY
     Route: 064
     Dates: end: 20090711
  6. TRUVADA [Concomitant]
     Dates: end: 20081117
  7. PROPYLTHIOURACIL [Concomitant]
     Indication: DRUG EXPOSURE DURING PREGNANCY
     Route: 064
  8. ABILIFY [Concomitant]
     Indication: DRUG EXPOSURE DURING PREGNANCY
     Route: 064
  9. ALBUTEROL [Concomitant]
     Indication: DRUG EXPOSURE DURING PREGNANCY
     Route: 064
  10. EMTRICITABINE/TENOFOVIR DISOPROXIL FUMARATE [Concomitant]
     Indication: DRUG EXPOSURE DURING PREGNANCY
     Route: 064
     Dates: start: 20080301, end: 20081117
  11. EMTRIVA [Concomitant]
     Indication: DRUG EXPOSURE DURING PREGNANCY
     Route: 064

REACTIONS (1)
  - VENTRICULAR SEPTAL DEFECT [None]
